FAERS Safety Report 10966509 (Version 1)
Quarter: 2015Q1

REPORT INFORMATION
  Report Type: Spontaneous
  Country: US (occurrence: US)
  Receive Date: 20150330
  Receipt Date: 20150330
  Transmission Date: 20150721
  Serious: Yes (Hospitalization)
  Sender: FDA-Public Use
  Company Number: US-NOVOPROD-443372

PATIENT
  Age: 32 Year
  Sex: Female
  Weight: 50.79 kg

DRUGS (1)
  1. NOVOLOG MIX 70/30 [Suspect]
     Active Substance: INSULIN ASPART
     Indication: TYPE 2 DIABETES MELLITUS
     Dosage: SLIDING SCALE, APPROXIMATELY 14 UNITS THREE TIMES DAILY WITH MEALS
     Route: 058
     Dates: start: 2010, end: 201502

REACTIONS (2)
  - Intracranial aneurysm [Unknown]
  - Cerebral thrombosis [Unknown]

NARRATIVE: CASE EVENT DATE: 201502
